FAERS Safety Report 15821498 (Version 3)
Quarter: 2019Q3

REPORT INFORMATION
  Report Type: Spontaneous
  Country: JP (occurrence: JP)
  Receive Date: 20190114
  Receipt Date: 20190919
  Transmission Date: 20191004
  Serious: Yes (Death)
  Sender: FDA-Public Use
  Company Number: JP-PFIZER INC-2019013896

PATIENT
  Age: 74 Year
  Sex: Male
  Weight: 34.1 kg

DRUGS (5)
  1. VFEND [Suspect]
     Active Substance: VORICONAZOLE
     Dosage: 100 MG, 2X/DAY
     Route: 041
     Dates: start: 20181212, end: 20181225
  2. AMBISOME [Concomitant]
     Active Substance: AMPHOTERICIN B
     Indication: ASPERGILLUS INFECTION
     Dosage: 120 MG, 1X/DAY
     Route: 041
     Dates: start: 20181122, end: 20181129
  3. MICAFUNGIN SODIUM [Concomitant]
     Active Substance: MICAFUNGIN SODIUM
     Indication: ASPERGILLUS INFECTION
     Dosage: 225 MG, 1X/DAY
     Route: 041
     Dates: start: 20181217, end: 20181225
  4. VFEND [Suspect]
     Active Substance: VORICONAZOLE
     Dosage: 140 MG, 2X/DAY
     Route: 041
  5. VFEND [Suspect]
     Active Substance: VORICONAZOLE
     Indication: ASPERGILLUS INFECTION
     Dosage: 200 MG, 2X/DAY
     Route: 041
     Dates: start: 20181130

REACTIONS (1)
  - Drug resistance [Fatal]
